FAERS Safety Report 6141649-8 (Version None)
Quarter: 2009Q2

REPORT INFORMATION
  Report Type: 
  Country: None (occurrence: None)
  Receive Date: 20090402
  Receipt Date: 20090323
  Transmission Date: 20091009
  Serious: Yes (Hospitalization)
  Sender: FDA-Public Use
  Company Number: B0568052A

PATIENT
  Age: 67 Year
  Sex: Female

DRUGS (1)
  1. PAROXETINE HCL [Suspect]
     Indication: MAJOR DEPRESSION
     Dosage: 20MG PER DAY
     Route: 048

REACTIONS (8)
  - ANOREXIA [None]
  - DIZZINESS [None]
  - DRY MOUTH [None]
  - GASTROINTESTINAL DISORDER [None]
  - HEADACHE [None]
  - HYPONATRAEMIA [None]
  - LETHARGY [None]
  - NAUSEA [None]
